FAERS Safety Report 7995542-6 (Version None)
Quarter: 2011Q4

REPORT INFORMATION
  Report Type: 
  Country: None (occurrence: None)
  Receive Date: 20111220
  Receipt Date: 20111217
  Transmission Date: 20120403
  Serious: Yes (Other)
  Sender: FDA-Public Use
  Company Number: US-PFIZER INC-2011307018

PATIENT
  Sex: Male
  Weight: 69.388 kg

DRUGS (2)
  1. ACETAMINOPHEN [Concomitant]
     Indication: PAIN
     Dosage: UNK
  2. VIAGRA [Suspect]
     Indication: ERECTILE DYSFUNCTION
     Dosage: 100 MG, AS NEEDED
     Route: 048
     Dates: start: 20111001

REACTIONS (1)
  - DEAFNESS TRANSITORY [None]
